FAERS Safety Report 25383618 (Version 1)
Quarter: 2025Q2

REPORT INFORMATION
  Report Type: Spontaneous
  Country: HR (occurrence: HR)
  Receive Date: 20250602
  Receipt Date: 20250602
  Transmission Date: 20250717
  Serious: Yes (Death, Other)
  Sender: BRISTOL-MYERS SQUIBB COMPANY
  Company Number: HR-BRISTOL-MYERS SQUIBB COMPANY-2025-078307

PATIENT
  Age: 57 Year
  Sex: Female

DRUGS (2)
  1. OPDIVO [Suspect]
     Active Substance: NIVOLUMAB
     Indication: Mesothelioma
     Route: 042
     Dates: end: 20250317
  2. YERVOY [Suspect]
     Active Substance: IPILIMUMAB
     Indication: Mesothelioma
     Route: 042
     Dates: end: 20250317

REACTIONS (1)
  - Death [Fatal]
